FAERS Safety Report 5714526-1 (Version None)
Quarter: 2008Q2

REPORT INFORMATION
  Report Type: 
  Country: None (occurrence: None)
  Receive Date: 20080421
  Receipt Date: 20080408
  Transmission Date: 20081010
  Serious: Yes (Hospitalization)
  Sender: FDA-Public Use
  Company Number: 2008AL002178

PATIENT
  Age: 76 Year
  Sex: Female

DRUGS (3)
  1. PHENYTOIN [Suspect]
     Indication: CONVULSION
     Dosage: 300 MG' QD
  2. DEXAMETHASONE [Concomitant]
  3. OMEPRAZOLE [Concomitant]

REACTIONS (6)
  - BACTERIAL CULTURE POSITIVE [None]
  - BLOOD CULTURE POSITIVE [None]
  - HYPOALBUMINAEMIA [None]
  - PSEUDOMONAS INFECTION [None]
  - SUPERINFECTION [None]
  - TOXIC EPIDERMAL NECROLYSIS [None]
